FAERS Safety Report 25658606 (Version 4)
Quarter: 2025Q4

REPORT INFORMATION
  Report Type: Report from Study
  Country: KR (occurrence: KR)
  Receive Date: 20250808
  Receipt Date: 20251105
  Transmission Date: 20260117
  Serious: Yes (Hospitalization, Other)
  Sender: ROCHE
  Company Number: KR-ROCHE-10000349712

PATIENT
  Age: 75 Year
  Sex: Female
  Weight: 53.3 kg

DRUGS (24)
  1. BEVACIZUMAB [Suspect]
     Active Substance: BEVACIZUMAB
     Indication: Appendix cancer
     Dosage: LAST DOE ADMINISTERED ON 31-JUL-2025
     Route: 042
     Dates: start: 20250407, end: 20250407
  2. BEVACIZUMAB [Suspect]
     Active Substance: BEVACIZUMAB
     Indication: Colon cancer
     Route: 042
     Dates: start: 20250729, end: 20250729
  3. BEVACIZUMAB [Suspect]
     Active Substance: BEVACIZUMAB
     Dosage: LAST DOE ADMINISTERED ON 31-JUL-2025
     Route: 042
     Dates: start: 20250429, end: 20250429
  4. BEVACIZUMAB [Suspect]
     Active Substance: BEVACIZUMAB
     Dosage: LAST DOE ADMINISTERED ON 31-JUL-2025
     Route: 042
     Dates: start: 20250520, end: 20250520
  5. BEVACIZUMAB [Suspect]
     Active Substance: BEVACIZUMAB
     Dosage: LAST DOE ADMINISTERED ON 31-JUL-2025
     Route: 042
     Dates: start: 20250610, end: 20250610
  6. BEVACIZUMAB [Suspect]
     Active Substance: BEVACIZUMAB
     Dosage: LAST DOE ADMINISTERED ON 31-JUL-2025
     Route: 042
     Dates: start: 20250701, end: 20250701
  7. ERLOTINIB [Suspect]
     Active Substance: ERLOTINIB
     Indication: Colon cancer
     Dosage: LAST DOE ADMINISTERED ON 31-JUL-2025
     Route: 048
     Dates: start: 20250407, end: 20250721
  8. ERLOTINIB [Suspect]
     Active Substance: ERLOTINIB
     Indication: Appendix cancer
     Route: 048
     Dates: start: 20250729, end: 20250731
  9. ERLOTINIB [Suspect]
     Active Substance: ERLOTINIB
     Route: 048
  10. ERLOTINIB [Suspect]
     Active Substance: ERLOTINIB
     Route: 048
     Dates: start: 20250701, end: 20250721
  11. ERLOTINIB [Suspect]
     Active Substance: ERLOTINIB
     Route: 048
     Dates: start: 20250407, end: 20250427
  12. ERLOTINIB [Suspect]
     Active Substance: ERLOTINIB
     Route: 048
     Dates: start: 20250429, end: 20250519
  13. ERLOTINIB [Suspect]
     Active Substance: ERLOTINIB
     Route: 048
     Dates: start: 20250520, end: 20250609
  14. ERLOTINIB [Suspect]
     Active Substance: ERLOTINIB
     Route: 048
     Dates: start: 20250610, end: 20250630
  15. ERLOTINIB [Suspect]
     Active Substance: ERLOTINIB
     Route: 065
  16. CAPECITABINE [Concomitant]
     Active Substance: CAPECITABINE
  17. FLUOROURACIL\IRINOTECAN\LEUCOVORIN [Concomitant]
     Active Substance: FLUOROURACIL\IRINOTECAN\LEUCOVORIN
  18. Urusa Tab. 200 mg [Concomitant]
     Indication: Prophylaxis
     Route: 048
     Dates: start: 20240520
  19. Encover Solution 200 mL (corn scent) [Concomitant]
     Route: 048
     Dates: start: 20240502
  20. Pennel Cap. [Concomitant]
     Indication: Hyperbilirubinaemia
     Route: 048
     Dates: start: 20250429
  21. Xyzal Tab. 5 mg [Concomitant]
     Indication: Rash
     Route: 048
     Dates: start: 20250429
  22. Topisol Milk Lotion 80 g [Concomitant]
     Indication: Rash
     Route: 061
     Dates: start: 20250429
  23. Easyef Ointment 10 g [Concomitant]
     Indication: Rash
     Route: 061
     Dates: start: 20250610
  24. PENIRAMIN [Concomitant]
     Dates: start: 20250731, end: 20250731

REACTIONS (4)
  - Rash [Recovering/Resolving]
  - Gastrointestinal inflammation [Recovered/Resolved]
  - Abdominal pain [Recovered/Resolved]
  - Hyperbilirubinaemia [Recovered/Resolved]

NARRATIVE: CASE EVENT DATE: 20250429
